FAERS Safety Report 20946415 (Version 1)
Quarter: 2022Q2

REPORT INFORMATION
  Report Type: Spontaneous
  Country: US (occurrence: US)
  Receive Date: 20220610
  Receipt Date: 20220610
  Transmission Date: 20220720
  Serious: No
  Sender: FDA-Public Use
  Company Number: US-PFIZER INC-202200809811

PATIENT
  Age: 72 Year
  Sex: Male
  Weight: 104.33 kg

DRUGS (1)
  1. PAXLOVID [Suspect]
     Active Substance: NIRMATRELVIR\RITONAVIR
     Indication: COVID-19 treatment
     Dosage: [PF-07321332 300 MG]/[RITONAVIR 100 MG]; 2X/DAY

REACTIONS (5)
  - Product taste abnormal [Unknown]
  - Taste disorder [Unknown]
  - Dysgeusia [Unknown]
  - Throat irritation [Unknown]
  - Fatigue [Unknown]
